FAERS Safety Report 5800526-X (Version None)
Quarter: 2008Q3

REPORT INFORMATION
  Report Type: 
  Country: None (occurrence: None)
  Receive Date: 20080703
  Receipt Date: 20080624
  Transmission Date: 20090109
  Serious: Yes (Other)
  Sender: FDA-Public Use
  Company Number: BR-ABBOTT-08P-020-0455518-00

PATIENT
  Sex: Female
  Weight: 105 kg

DRUGS (3)
  1. HUMIRA [Suspect]
     Indication: RHEUMATOID ARTHRITIS
     Route: 058
     Dates: start: 20070801, end: 20080501
  2. PREDNISONE 50MG TAB [Concomitant]
     Indication: RHEUMATOID ARTHRITIS
     Dosage: 1 TAB IN THE MORNING AND 1 TAB AT NIGHT
     Route: 048
  3. PREDNISONE 50MG TAB [Concomitant]
     Dosage: 1 TAB AT NIGHT
     Route: 048

REACTIONS (4)
  - COUGH [None]
  - MYOCARDIAL OEDEMA [None]
  - PNEUMONIA [None]
  - WEIGHT INCREASED [None]
